FAERS Safety Report 5192025-6 (Version None)
Quarter: 2006Q4

REPORT INFORMATION
  Report Type: 
  Country: None (occurrence: None)
  Receive Date: 20061220
  Receipt Date: 20061220
  Transmission Date: 20070319
  Serious: Yes (Hospitalization)
  Sender: FDA-Public Use
  Company Number: None

PATIENT
  Age: 30 Year
  Sex: Female
  Weight: 125 kg

DRUGS (4)
  1. METHOTREXATE [Suspect]
     Indication: ECTOPIC PREGNANCY
     Dosage: 109.5 MG OTO IM
     Route: 030
     Dates: start: 20060812
  2. METHOTREXATE [Suspect]
     Indication: ECTOPIC PREGNANCY
     Dosage: 109.5 MG OTO IM
     Route: 030
     Dates: start: 20060819
  3. NORCO [Concomitant]
  4. ZOFRAN [Concomitant]

REACTIONS (4)
  - CHILLS [None]
  - ECTOPIC PREGNANCY [None]
  - RETCHING [None]
  - TREMOR [None]
